FAERS Safety Report 5259273-8 (Version None)
Quarter: 2007Q1

REPORT INFORMATION
  Report Type: 
  Country: None (occurrence: None)
  Receive Date: 20070308
  Receipt Date: 20070301
  Transmission Date: 20070707
  Serious: Yes (Hospitalization)
  Sender: FDA-Public Use
  Company Number: DE-BOEHRINGER INGELHEIM GMBH, GERMANY-2007-DE-01160DE

PATIENT
  Sex: Male
  Weight: 97 kg

DRUGS (3)
  1. AGGRENOX [Suspect]
     Indication: CEREBRAL INFARCTION
     Route: 048
  2. AGGRENOX [Suspect]
     Indication: HEMIPARESIS
  3. AGGRENOX [Suspect]
     Indication: APHASIA

REACTIONS (3)
  - HEADACHE [None]
  - NAUSEA [None]
  - VOMITING [None]
